FAERS Safety Report 9308406 (Version 2)
Quarter: 2013Q4

REPORT INFORMATION
  Report Type: Report from Study
  Country: GB (occurrence: GB)
  Receive Date: 20130524
  Receipt Date: 20131129
  Transmission Date: 20140711
  Serious: Yes (Hospitalization)
  Sender: FDA-Public Use
  Company Number: PHHY2013GB049054

PATIENT
  Age: 78 Year
  Sex: Male

DRUGS (9)
  1. PARACETAMOL [Suspect]
  2. METFORMIN [Suspect]
     Indication: TYPE 2 DIABETES MELLITUS
     Dosage: 1000 MG, UNK
  3. NOVORAPID [Suspect]
     Indication: TYPE 2 DIABETES MELLITUS
     Dosage: 66 IU, UNK
  4. INSULATARD [Suspect]
     Indication: TYPE 2 DIABETES MELLITUS
     Dosage: 22 IU, UNK
  5. SAXAGLIPTIN [Concomitant]
     Indication: TYPE 2 DIABETES MELLITUS
     Route: 048
     Dates: start: 20101216, end: 20111101
  6. SAXAGLIPTIN [Concomitant]
     Route: 048
     Dates: start: 20111215
  7. BUMETANIDE [Concomitant]
     Dates: start: 20110708
  8. SERTRALINE [Concomitant]
     Dates: start: 20110912
  9. PLACEBO [Concomitant]

REACTIONS (2)
  - Gastrooesophageal reflux disease [Recovered/Resolved]
  - Vomiting [Recovered/Resolved]
